FAERS Safety Report 21140929 (Version 2)
Quarter: 2022Q3

REPORT INFORMATION
  Report Type: Spontaneous
  Country: JP (occurrence: JP)
  Receive Date: 20220728
  Receipt Date: 20220817
  Transmission Date: 20221027
  Serious: Yes (Hospitalization, Other)
  Sender: FDA-Public Use
  Company Number: None

PATIENT
  Age: 72 Year
  Sex: Male

DRUGS (15)
  1. PREDNISOLONE [Suspect]
     Active Substance: PREDNISOLONE
     Indication: Acquired haemophilia
     Dosage: 60 MILLIGRAM, UNKNOWN
     Route: 065
     Dates: start: 202004, end: 2020
  2. PREDNISOLONE [Suspect]
     Active Substance: PREDNISOLONE
     Dosage: UNK, TEMPORARILY INCREASED
     Route: 065
     Dates: start: 2020
  3. PREDNISOLONE [Suspect]
     Active Substance: PREDNISOLONE
     Dosage: 2 MILLIGRAM, GRADUALLY REDUCED
     Route: 065
  4. CYCLOPHOSPHAMIDE [Suspect]
     Active Substance: CYCLOPHOSPHAMIDE
     Indication: Acquired haemophilia
     Dosage: 100 MILLIGRAM, UNKNOWN
     Route: 065
     Dates: start: 202004, end: 2020
  5. CYCLOPHOSPHAMIDE [Suspect]
     Active Substance: CYCLOPHOSPHAMIDE
     Indication: Acquired haemophilia
     Route: 065
  6. ROSUVASTATIN CALCIUM [Concomitant]
     Active Substance: ROSUVASTATIN CALCIUM
     Indication: Myocardial ischaemia
     Dosage: UNK
     Route: 065
  7. ROSUVASTATIN CALCIUM [Concomitant]
     Active Substance: ROSUVASTATIN CALCIUM
     Indication: Dyslipidaemia
  8. PRASUGREL HYDROCHLORIDE [Concomitant]
     Active Substance: PRASUGREL HYDROCHLORIDE
     Indication: Myocardial ischaemia
     Dosage: UNK
     Route: 065
  9. PRASUGREL HYDROCHLORIDE [Concomitant]
     Active Substance: PRASUGREL HYDROCHLORIDE
     Indication: Dyslipidaemia
  10. ASPIRIN [Concomitant]
     Active Substance: ASPIRIN
     Indication: Myocardial ischaemia
     Dosage: UNK
     Route: 065
  11. ASPIRIN [Concomitant]
     Active Substance: ASPIRIN
     Indication: Dyslipidaemia
  12. ENALAPRIL MALEATE [Concomitant]
     Active Substance: ENALAPRIL MALEATE
     Indication: Myocardial ischaemia
     Dosage: UNK
     Route: 065
  13. ENALAPRIL MALEATE [Concomitant]
     Active Substance: ENALAPRIL MALEATE
     Indication: Dyslipidaemia
  14. LANSOPRAZOLE [Concomitant]
     Active Substance: LANSOPRAZOLE
     Indication: Myocardial ischaemia
     Dosage: UNK
     Route: 065
  15. LANSOPRAZOLE [Concomitant]
     Active Substance: LANSOPRAZOLE
     Indication: Dyslipidaemia

REACTIONS (6)
  - Aortic aneurysm [Recovered/Resolved]
  - Cytopenia [Unknown]
  - Helicobacter infection [Recovered/Resolved]
  - Infection [Recovered/Resolved]
  - Infective aneurysm [Recovered/Resolved]
  - Drug ineffective [Unknown]

NARRATIVE: CASE EVENT DATE: 20200101
